FAERS Safety Report 17564976 (Version 1)
Quarter: 2020Q1

REPORT INFORMATION
  Report Type: Spontaneous
  Country: US (occurrence: US)
  Receive Date: 20200320
  Receipt Date: 20200320
  Transmission Date: 20200409
  Serious: No
  Sender: FDA-Public Use
  Company Number: US-SA-2020SA070358

PATIENT
  Age: 57 Year
  Sex: Female
  Weight: 72.57 kg

DRUGS (3)
  1. METOPROLOL. [Concomitant]
     Active Substance: METOPROLOL
     Route: 065
  2. ASPIRIN [ACETYLSALICYLIC ACID] [Concomitant]
     Active Substance: ASPIRIN
     Route: 065
  3. PLAVIX [Suspect]
     Active Substance: CLOPIDOGREL BISULFATE
     Route: 065

REACTIONS (3)
  - Blood pressure fluctuation [Unknown]
  - Fatigue [Unknown]
  - Inflammation [Unknown]
